FAERS Safety Report 5811739-5 (Version None)
Quarter: 2008Q3

REPORT INFORMATION
  Report Type: 
  Country: None (occurrence: None)
  Receive Date: 20080716
  Receipt Date: 20080709
  Transmission Date: 20090109
  Serious: Yes (Other)
  Sender: FDA-Public Use
  Company Number: B0528364A

PATIENT
  Age: 51 Year
  Sex: Female

DRUGS (3)
  1. SEROXAT [Suspect]
     Indication: DEPRESSION
     Dosage: 20MG ALTERNATE DAYS
     Route: 048
     Dates: start: 19960101, end: 20080630
  2. SIMVASTATIN [Concomitant]
     Indication: HYPERTENSION
  3. ASPIRIN [Concomitant]

REACTIONS (4)
  - EMOTIONAL DISORDER [None]
  - NIGHTMARE [None]
  - SHOCK [None]
  - WITHDRAWAL SYNDROME [None]
